FAERS Safety Report 6618024-2 (Version None)
Quarter: 2010Q1

REPORT INFORMATION
  Report Type: 
  Country: None (occurrence: None)
  Receive Date: 20100308
  Receipt Date: 20100302
  Transmission Date: 20100710
  Serious: Yes (Other)
  Sender: FDA-Public Use
  Company Number: EE-BRISTOL-MYERS SQUIBB COMPANY-14981369

PATIENT
  Sex: Female

DRUGS (3)
  1. MONOPRIL [Suspect]
     Indication: HYPERTENSION
     Dosage: 10MG * 1
     Route: 048
  2. TEVETEN [Suspect]
     Indication: HYPERTENSION
     Route: 048
  3. METFORMIN HYDROCHLORIDE [Suspect]
     Indication: TYPE 2 DIABETES MELLITUS

REACTIONS (3)
  - CAESAREAN SECTION [None]
  - LIVE BIRTH [None]
  - PREGNANCY [None]
